FAERS Safety Report 9130750 (Version 3)
Quarter: 2013Q2

REPORT INFORMATION
  Report Type: Spontaneous
  Country: AU (occurrence: AU)
  Receive Date: 20130301
  Receipt Date: 20130412
  Transmission Date: 20140414
  Serious: Yes (Other)
  Sender: FDA-Public Use
  Company Number: PHHY2013AU019878

PATIENT
  Sex: Female

DRUGS (12)
  1. ACLASTA [Suspect]
     Dosage: UNK
     Route: 042
     Dates: start: 20111208
  2. CALTRATE WITH VITAMIN D [Concomitant]
     Indication: VITAMIN D DEFICIENCY
     Dosage: 2 DF QD
     Route: 048
  3. MINERALS NOS [Concomitant]
     Indication: VITAMIN D DEFICIENCY
     Dosage: 2 DF, QD
     Route: 048
  4. CARAFATE [Concomitant]
     Indication: HELICOBACTER INFECTION
     Dosage: 1 DF, QID MDU
     Route: 048
  5. DIPROSONE [Concomitant]
     Dosage: 1 DF, BID
  6. HYDROZOLE [Concomitant]
     Indication: INTERTRIGO
     Dosage: 1 DF, BID
     Route: 061
  7. LIPITOR [Concomitant]
     Indication: DYSLIPIDAEMIA
     Dosage: 20 MG, QD
     Route: 048
  8. MADOPAR [Concomitant]
     Indication: DYSTONIA
     Dosage: 1 DF, TID
     Route: 048
  9. OVESTIN [Concomitant]
     Dosage: 1 DF,MDU
     Route: 067
  10. PANAMAX [Concomitant]
     Dosage: 500 MG, PRN
  11. TRITACE [Concomitant]
     Indication: HYPERTENSION
     Dosage: 5 MG,1 MANE
     Route: 048
  12. VENTOLIN [Concomitant]
     Dosage: 100 MCG/DOSE 2 PUFFS TID PRN

REACTIONS (1)
  - Tooth abscess [Unknown]
